FAERS Safety Report 4929563-4 (Version None)
Quarter: 2006Q1

REPORT INFORMATION
  Report Type: 
  Country: None (occurrence: None)
  Receive Date: 20060224
  Receipt Date: 20060217
  Transmission Date: 20060701
  Serious: Yes (Life-Threatening)
  Sender: FDA-Public Use
  Company Number: 222263

PATIENT
  Age: 71 Year
  Sex: Male

DRUGS (4)
  1. ACTIVACIN(ALTEPLASE) PWDR + SOLVENT, INFUSION SOLN [Suspect]
     Indication: CEREBRAL THROMBOSIS
     Dosage: 38.38 MG, SINGLE, INTRAVENOUS
     Route: 042
     Dates: start: 20051212, end: 20051212
  2. TICLOPIDINE HCL [Suspect]
     Indication: CEREBRAL THROMBOSIS
     Dosage: 100 MG, ORAL
     Route: 048
     Dates: start: 20051215
  3. NICARDIPINE HCL [Concomitant]
  4. NICOTINIC ACID (NIACIN) [Concomitant]

REACTIONS (7)
  - ALANINE AMINOTRANSFERASE INCREASED [None]
  - ASPARTATE AMINOTRANSFERASE INCREASED [None]
  - BLOOD URINE PRESENT [None]
  - HAEMORRHAGIC DIATHESIS [None]
  - LIVER DISORDER [None]
  - PNEUMONIA [None]
  - RESPIRATORY FAILURE [None]
